FAERS Safety Report 9336716 (Version 3)
Quarter: 2013Q4

REPORT INFORMATION
  Report Type: Spontaneous
  Country: US (occurrence: US)
  Receive Date: 20130607
  Receipt Date: 20131028
  Transmission Date: 20140711
  Serious: Yes (Hospitalization)
  Sender: FDA-Public Use
  Company Number: US-BAYER-2013-069771

PATIENT
  Age: 49 Year
  Sex: Female
  Weight: 62.13 kg

DRUGS (1)
  1. MIRENA [Suspect]
     Indication: CONTRACEPTION
     Dosage: 20 MCG/24HR, CONT
     Route: 015
     Dates: start: 200805, end: 20130717

REACTIONS (9)
  - Uterine enlargement [None]
  - Uterine leiomyoma [None]
  - Blood follicle stimulating hormone increased [None]
  - Device difficult to use [Recovered/Resolved]
  - Device dislocation [Recovered/Resolved]
  - Uterine perforation [Recovered/Resolved]
  - Device difficult to use [Recovered/Resolved]
  - Anxiety [None]
  - Crying [None]
